FAERS Safety Report 22059586 (Version 1)
Quarter: 2023Q1

REPORT INFORMATION
  Report Type: Spontaneous
  Country: US (occurrence: US)
  Receive Date: 20230303
  Receipt Date: 20230303
  Transmission Date: 20230418
  Serious: No
  Sender: FDA-Public Use
  Company Number: US-SA-SAC20230301001182

PATIENT
  Age: 6 Year
  Sex: Male
  Weight: 34.921 kg

DRUGS (1)
  1. DUPIXENT [Suspect]
     Active Substance: DUPILUMAB
     Indication: Dermatitis atopic
     Dosage: 200 MG, QOW
     Route: 058
     Dates: start: 20230130

REACTIONS (1)
  - Injection site eczema [Not Recovered/Not Resolved]

NARRATIVE: CASE EVENT DATE: 20230101
